FAERS Safety Report 10195848 (Version 1)
Quarter: 2014Q2

REPORT INFORMATION
  Report Type: Spontaneous
  Country: AU (occurrence: None)
  Receive Date: 20140519
  Receipt Date: 20140519
  Transmission Date: 20141212
  Serious: Yes (Other)
  Sender: FDA-Public Use
  Company Number: B0994295A

PATIENT
  Sex: 0

DRUGS (1)
  1. LAMIVUDINE-HBV [Suspect]
     Indication: CHRONIC HEPATITIS B
     Route: 064

REACTIONS (2)
  - Polyhydramnios [None]
  - Foetal exposure during pregnancy [None]
